FAERS Safety Report 4385470-X (Version None)
Quarter: 2004Q2

REPORT INFORMATION
  Report Type: 
  Country: None (occurrence: None)
  Receive Date: 20040622
  Receipt Date: 20040608
  Transmission Date: 20050107
  Serious: Yes (Death)
  Sender: FDA-Public Use
  Company Number: 2004-BP-03348RP

PATIENT
  Age: 85 Year
  Sex: Female

DRUGS (5)
  1. MICARDIS HCT [Suspect]
     Indication: HYPERTENSION
     Dosage: 40 MG/12.5 MG (SEE TEXT, 1 TAB OD (STRENGTH 40/12.5 MG))
     Route: 048
     Dates: start: 20030316
  2. LASIX [Concomitant]
  3. LANOXIN [Concomitant]
  4. GLUCOPHAGE [Concomitant]
  5. TRANSDERM-NITRO 5 (NITROGLYCERINE) [Concomitant]

REACTIONS (1)
  - TREATMENT NONCOMPLIANCE [None]
